FAERS Safety Report 14592636 (Version 2)
Quarter: 2018Q1

REPORT INFORMATION
  Report Type: Spontaneous
  Country: ZA (occurrence: ZA)
  Receive Date: 20180302
  Receipt Date: 20180309
  Transmission Date: 20180509
  Serious: Yes (Hospitalization)
  Sender: FDA-Public Use
  Company Number: ZA-PFIZER INC-2018086110

PATIENT
  Age: 45 Year
  Sex: Female

DRUGS (14)
  1. TOPRAZ /01263204/ [Suspect]
     Active Substance: PANTOPRAZOLE SODIUM
     Dosage: 10 MG, UNK
  2. CITALOPRAM [Suspect]
     Active Substance: CITALOPRAM HYDROBROMIDE
     Dosage: 20 MG, UNK
  3. SALAZOPYRIN EN [Suspect]
     Active Substance: SULFASALAZINE
     Dosage: 500 MG, UNK
  4. SLOW-K [Suspect]
     Active Substance: POTASSIUM CHLORIDE
     Dosage: 600 MG, UNK
  5. PURESIS [Suspect]
     Active Substance: FUROSEMIDE
     Dosage: 40 MG, UNK
  6. METHOTREXATE SODIUM. [Suspect]
     Active Substance: METHOTREXATE SODIUM
     Dosage: 2.5 MG, UNK
  7. LIPOGEN /00638501/ [Suspect]
     Active Substance: GEMFIBROZIL
     Dosage: 20 MG, UNK
  8. PURICOS [Suspect]
     Active Substance: ALLOPURINOL
     Dosage: 100 MG, UNK
  9. TOPZOLE [Suspect]
     Active Substance: PANTOPRAZOLE SODIUM
     Dosage: 40 MG, UNK
  10. CARVETREND [Suspect]
     Active Substance: CARVEDILOL
     Dosage: 12.5 MG, UNK
  11. SYMBICORD [Suspect]
     Active Substance: BUDESONIDE\FORMOTEROL
     Dosage: 320 UG, UNK
  12. SPIRACTIN (SPIRONOLACTONE) [Suspect]
     Active Substance: SPIRONOLACTONE
     Dosage: 100 MG, UNK
  13. OMNAIR [Suspect]
     Active Substance: CICLESONIDE
     Dosage: 50 UG, UNK
  14. AVAMYS [Suspect]
     Active Substance: FLUTICASONE FUROATE
     Dosage: 27 UG, UNK

REACTIONS (2)
  - Blood calcium decreased [Recovering/Resolving]
  - Thyroid neoplasm [Unknown]

NARRATIVE: CASE EVENT DATE: 201801
